FAERS Safety Report 7300166-X (Version None)
Quarter: 2011Q1

REPORT INFORMATION
  Report Type: 
  Country: None (occurrence: None)
  Receive Date: 20110217
  Receipt Date: 20110211
  Transmission Date: 20110831
  Serious: Yes (Hospitalization)
  Sender: FDA-Public Use
  Company Number: US-BIOGENIDEC-2010BI021444

PATIENT
  Age: 53 Year
  Sex: Male

DRUGS (3)
  1. AVONEX [Suspect]
     Indication: MULTIPLE SCLEROSIS
     Route: 030
     Dates: start: 20090501
  2. AVONEX [Suspect]
     Route: 030
     Dates: start: 20010101, end: 20090118
  3. AVONEX [Suspect]
     Route: 030
     Dates: start: 20090501

REACTIONS (3)
  - ACUTE MYOCARDIAL INFARCTION [None]
  - PLEURITIC PAIN [None]
  - CEREBROVASCULAR ACCIDENT [None]
